FAERS Safety Report 22108300 (Version 1)
Quarter: 2023Q1

REPORT INFORMATION
  Report Type: Spontaneous
  Country: US (occurrence: None)
  Receive Date: 20230316
  Receipt Date: 20230316
  Transmission Date: 20230417
  Serious: No
  Sender: FDA-Public Use
  Company Number: None

PATIENT
  Age: 31 Year
  Sex: Female
  Weight: 35.2 kg

DRUGS (1)
  1. ACTIVASE [Suspect]
     Active Substance: ALTEPLASE
     Indication: Cerebrovascular accident
     Dosage: OTHER FREQUENCY : OTHER;?
     Route: 042
     Dates: start: 20230103, end: 20230103

REACTIONS (5)
  - Oropharyngeal pain [None]
  - Pharyngeal erythema [None]
  - Pharyngeal oedema [None]
  - Flank pain [None]
  - Infusion related reaction [None]

NARRATIVE: CASE EVENT DATE: 20230103
